FAERS Safety Report 5310176-X (Version None)
Quarter: 2007Q2

REPORT INFORMATION
  Report Type: 
  Country: None (occurrence: None)
  Receive Date: 20070423
  Receipt Date: 20070416
  Transmission Date: 20071010
  Serious: Yes (Hospitalization)
  Sender: FDA-Public Use
  Company Number: MEDI-0005490

PATIENT
  Age: 54 Year
  Sex: Male

DRUGS (3)
  1. ETHYOL [Suspect]
     Indication: TONGUE NEOPLASM MALIGNANT STAGE UNSPECIFIED
     Dates: start: 20061120, end: 20061201
  2. ETHYOL [Suspect]
     Indication: TONGUE NEOPLASM MALIGNANT STAGE UNSPECIFIED
     Dates: start: 20061201, end: 20061228
  3. RADIATION THERAPY [Concomitant]

REACTIONS (5)
  - COAGULATION FACTOR DECREASED [None]
  - HAEMOGLOBIN DECREASED [None]
  - LYMPHOPENIA [None]
  - PROTHROMBIN TIME PROLONGED [None]
  - STEVENS-JOHNSON SYNDROME [None]
